FAERS Safety Report 9279114 (Version 1)
Quarter: 2013Q2

REPORT INFORMATION
  Report Type: Spontaneous
  Country: US (occurrence: US)
  Receive Date: 20130508
  Receipt Date: 20130508
  Transmission Date: 20140414
  Serious: No
  Sender: FDA-Public Use
  Company Number: US-ASTRAZENECA-2013SE25677

PATIENT
  Age: 65 Year
  Sex: Male
  Weight: 86.2 kg

DRUGS (7)
  1. SYMBICORT [Suspect]
     Indication: CHRONIC OBSTRUCTIVE PULMONARY DISEASE
     Dosage: 160/4.5, 2 PUFFS BID
     Route: 055
     Dates: start: 201212
  2. ZESTRIL [Suspect]
     Indication: BLOOD PRESSURE ABNORMAL
     Route: 048
  3. OMEPRAZOLE [Suspect]
     Indication: GASTROOESOPHAGEAL REFLUX DISEASE
     Route: 048
  4. TYLENOL PM [Concomitant]
     Indication: SLEEP DISORDER
     Dosage: DAILY
     Route: 048
  5. CARVEDILOL [Concomitant]
     Indication: HYPERTENSION
     Route: 048
  6. EYE VITAMIN [Concomitant]
     Dosage: DAILY
     Route: 048
  7. MULTI VITAMIN [Concomitant]
     Dosage: DAILY
     Route: 048
     Dates: start: 1983

REACTIONS (4)
  - Dysphonia [Not Recovered/Not Resolved]
  - Increased upper airway secretion [Not Recovered/Not Resolved]
  - Eye disorder [Recovered/Resolved]
  - Tongue blistering [Not Recovered/Not Resolved]
